FAERS Safety Report 6895199-1 (Version None)
Quarter: 2010Q3

REPORT INFORMATION
  Report Type: 
  Country: None (occurrence: None)
  Receive Date: 20100802
  Receipt Date: 20100722
  Transmission Date: 20110219
  Serious: Yes (Other)
  Sender: FDA-Public Use
  Company Number: PHFR2010GB00514

PATIENT
  Sex: Female

DRUGS (11)
  1. TEGRETOL [Suspect]
     Indication: TRIGEMINAL NEURALGIA
     Dosage: 500 MG, BID
     Dates: start: 20070101
  2. TEGRETOL [Suspect]
     Indication: EPILEPSY
     Dosage: 800 MG, BID
  3. NIFEDIPINE [Suspect]
     Indication: HYPERTENSION
     Dosage: 30 MG, UNK
  4. CALCICHEW [Suspect]
  5. BUMETANIDE [Suspect]
     Indication: HYPERTENSION
     Dosage: 2 MG, UNK
  6. AMITRIPTYLINE HYDROCHLORIDE [Suspect]
     Dosage: 50 MG, UNK
  7. METHOTREXATE [Concomitant]
     Indication: RHEUMATOID ARTHRITIS
     Dosage: UNK
     Dates: start: 20070701, end: 20100201
  8. ATORVASTATIN [Concomitant]
     Indication: BLOOD CHOLESTEROL INCREASED
     Dosage: 80 MG, UNK
  9. LOSARTAN POSTASSIUM [Concomitant]
     Dosage: 100 MG, UNK
  10. PREDNISOLONE [Concomitant]
     Indication: RHEUMATOID ARTHRITIS
     Dosage: 10 MG, UNK
  11. OMEPRAZOLE [Concomitant]
     Indication: HYPERTENSION
     Dosage: 40 MG, UNK

REACTIONS (4)
  - ALANINE AMINOTRANSFERASE INCREASED [None]
  - EPILEPSY [None]
  - GAMMA-GLUTAMYLTRANSFERASE INCREASED [None]
  - RHEUMATOID ARTHRITIS [None]
